FAERS Safety Report 25549055 (Version 1)
Quarter: 2025Q3

REPORT INFORMATION
  Report Type: Spontaneous
  Country: CA (occurrence: CA)
  Receive Date: 20250714
  Receipt Date: 20250714
  Transmission Date: 20251021
  Serious: Yes (Death, Life-Threatening, Hospitalization, Other)
  Sender: MYLAN
  Company Number: CA-MYLANLABS-2025M1058225

PATIENT
  Age: 75 Year
  Sex: Female

DRUGS (116)
  1. PHENYTOIN [Suspect]
     Active Substance: PHENYTOIN
     Indication: Status epilepticus
     Dosage: 1000 MILLIGRAM, QD (1 EVERY 1 DAYS))
  2. PHENYTOIN [Suspect]
     Active Substance: PHENYTOIN
     Indication: Cerebral amyloid angiopathy
     Dosage: 1000 MILLIGRAM, QD (1 EVERY 1 DAYS))
     Route: 042
  3. PHENYTOIN [Suspect]
     Active Substance: PHENYTOIN
     Dosage: 1000 MILLIGRAM, QD (1 EVERY 1 DAYS))
     Route: 042
  4. PHENYTOIN [Suspect]
     Active Substance: PHENYTOIN
     Dosage: 1000 MILLIGRAM, QD (1 EVERY 1 DAYS))
  5. PHENYTOIN [Suspect]
     Active Substance: PHENYTOIN
     Dosage: 100 MILLIGRAM, TID (3 EVERY 1 DAYS)
  6. PHENYTOIN [Suspect]
     Active Substance: PHENYTOIN
     Dosage: 100 MILLIGRAM, TID (3 EVERY 1 DAYS)
     Route: 048
  7. PHENYTOIN [Suspect]
     Active Substance: PHENYTOIN
     Dosage: 100 MILLIGRAM, TID (3 EVERY 1 DAYS)
  8. PHENYTOIN [Suspect]
     Active Substance: PHENYTOIN
     Dosage: 100 MILLIGRAM, TID (3 EVERY 1 DAYS)
     Route: 048
  9. PHENYTOIN [Suspect]
     Active Substance: PHENYTOIN
     Route: 065
  10. PHENYTOIN [Suspect]
     Active Substance: PHENYTOIN
     Route: 065
  11. PHENYTOIN [Suspect]
     Active Substance: PHENYTOIN
  12. PHENYTOIN [Suspect]
     Active Substance: PHENYTOIN
  13. VALPROIC ACID [Suspect]
     Active Substance: VALPROIC ACID
     Indication: Status epilepticus
     Dosage: 500 MILLIGRAM, TID (3 EVERY 1 DAYS)
     Route: 048
  14. VALPROIC ACID [Suspect]
     Active Substance: VALPROIC ACID
     Indication: Cerebral amyloid angiopathy
     Dosage: 500 MILLIGRAM, TID (3 EVERY 1 DAYS)
  15. VALPROIC ACID [Suspect]
     Active Substance: VALPROIC ACID
     Dosage: 500 MILLIGRAM, TID (3 EVERY 1 DAYS)
  16. VALPROIC ACID [Suspect]
     Active Substance: VALPROIC ACID
     Dosage: 500 MILLIGRAM, TID (3 EVERY 1 DAYS)
     Route: 048
  17. VALPROIC ACID [Suspect]
     Active Substance: VALPROIC ACID
     Route: 065
  18. VALPROIC ACID [Suspect]
     Active Substance: VALPROIC ACID
  19. VALPROIC ACID [Suspect]
     Active Substance: VALPROIC ACID
  20. VALPROIC ACID [Suspect]
     Active Substance: VALPROIC ACID
     Route: 065
  21. LACOSAMIDE [Suspect]
     Active Substance: LACOSAMIDE
     Indication: Status epilepticus
  22. LACOSAMIDE [Suspect]
     Active Substance: LACOSAMIDE
     Indication: Cerebral amyloid angiopathy
     Route: 065
  23. LACOSAMIDE [Suspect]
     Active Substance: LACOSAMIDE
     Route: 065
  24. LACOSAMIDE [Suspect]
     Active Substance: LACOSAMIDE
  25. MIDAZOLAM [Suspect]
     Active Substance: MIDAZOLAM
     Indication: Status epilepticus
  26. MIDAZOLAM [Suspect]
     Active Substance: MIDAZOLAM
     Indication: Cerebral amyloid angiopathy
     Route: 065
  27. MIDAZOLAM [Suspect]
     Active Substance: MIDAZOLAM
     Route: 065
  28. MIDAZOLAM [Suspect]
     Active Substance: MIDAZOLAM
  29. LEVETIRACETAM [Suspect]
     Active Substance: LEVETIRACETAM
     Indication: Status epilepticus
     Dosage: 500 MILLIGRAM, BID (2 EVERY 1 DAYS)
     Route: 048
  30. LEVETIRACETAM [Suspect]
     Active Substance: LEVETIRACETAM
     Indication: Cerebral amyloid angiopathy
     Dosage: 500 MILLIGRAM, BID (2 EVERY 1 DAYS)
  31. LEVETIRACETAM [Suspect]
     Active Substance: LEVETIRACETAM
     Dosage: 500 MILLIGRAM, BID (2 EVERY 1 DAYS)
  32. LEVETIRACETAM [Suspect]
     Active Substance: LEVETIRACETAM
     Dosage: 500 MILLIGRAM, BID (2 EVERY 1 DAYS)
     Route: 048
  33. LEVETIRACETAM [Suspect]
     Active Substance: LEVETIRACETAM
     Dosage: 750 MILLIGRAM, BID (2 EVERY 1 DAYS)
     Route: 048
  34. LEVETIRACETAM [Suspect]
     Active Substance: LEVETIRACETAM
     Dosage: 750 MILLIGRAM, BID (2 EVERY 1 DAYS)
  35. LEVETIRACETAM [Suspect]
     Active Substance: LEVETIRACETAM
     Dosage: 750 MILLIGRAM, BID (2 EVERY 1 DAYS)
  36. LEVETIRACETAM [Suspect]
     Active Substance: LEVETIRACETAM
     Dosage: 750 MILLIGRAM, BID (2 EVERY 1 DAYS)
     Route: 048
  37. LEVETIRACETAM [Suspect]
     Active Substance: LEVETIRACETAM
     Dosage: 1000 MILLIGRAM, BID (2 EVERY 1 DAYS)
  38. LEVETIRACETAM [Suspect]
     Active Substance: LEVETIRACETAM
     Dosage: 1000 MILLIGRAM, BID (2 EVERY 1 DAYS)
  39. LEVETIRACETAM [Suspect]
     Active Substance: LEVETIRACETAM
     Dosage: 1000 MILLIGRAM, BID (2 EVERY 1 DAYS)
     Route: 048
  40. LEVETIRACETAM [Suspect]
     Active Substance: LEVETIRACETAM
     Dosage: 1000 MILLIGRAM, BID (2 EVERY 1 DAYS)
     Route: 048
  41. LEVETIRACETAM [Suspect]
     Active Substance: LEVETIRACETAM
     Dosage: 2000 MILLIGRAM, QD (1 EVERY 1 DAYS)
  42. LEVETIRACETAM [Suspect]
     Active Substance: LEVETIRACETAM
     Dosage: 2000 MILLIGRAM, QD (1 EVERY 1 DAYS)
  43. LEVETIRACETAM [Suspect]
     Active Substance: LEVETIRACETAM
     Dosage: 2000 MILLIGRAM, QD (1 EVERY 1 DAYS)
     Route: 042
  44. LEVETIRACETAM [Suspect]
     Active Substance: LEVETIRACETAM
     Dosage: 2000 MILLIGRAM, QD (1 EVERY 1 DAYS)
     Route: 042
  45. LORAZEPAM [Suspect]
     Active Substance: LORAZEPAM
     Indication: Status epilepticus
  46. LORAZEPAM [Suspect]
     Active Substance: LORAZEPAM
     Indication: Cerebral amyloid angiopathy
  47. LORAZEPAM [Suspect]
     Active Substance: LORAZEPAM
     Route: 065
  48. LORAZEPAM [Suspect]
     Active Substance: LORAZEPAM
     Route: 065
  49. LORAZEPAM [Suspect]
     Active Substance: LORAZEPAM
     Dosage: 2 MILLIGRAM, QD (1 EVERY 1 DAYS)
  50. LORAZEPAM [Suspect]
     Active Substance: LORAZEPAM
     Dosage: 2 MILLIGRAM, QD (1 EVERY 1 DAYS)
  51. LORAZEPAM [Suspect]
     Active Substance: LORAZEPAM
     Dosage: 2 MILLIGRAM, QD (1 EVERY 1 DAYS)
     Route: 042
  52. LORAZEPAM [Suspect]
     Active Substance: LORAZEPAM
     Dosage: 2 MILLIGRAM, QD (1 EVERY 1 DAYS)
     Route: 042
  53. PROPOFOL [Suspect]
     Active Substance: PROPOFOL
     Indication: Status epilepticus
  54. PROPOFOL [Suspect]
     Active Substance: PROPOFOL
     Indication: Cerebral amyloid angiopathy
     Route: 065
  55. PROPOFOL [Suspect]
     Active Substance: PROPOFOL
     Route: 065
  56. PROPOFOL [Suspect]
     Active Substance: PROPOFOL
  57. METHYLPREDNISOLONE [Suspect]
     Active Substance: METHYLPREDNISOLONE
     Indication: Evidence based treatment
  58. METHYLPREDNISOLONE [Suspect]
     Active Substance: METHYLPREDNISOLONE
  59. METHYLPREDNISOLONE [Suspect]
     Active Substance: METHYLPREDNISOLONE
     Route: 042
  60. METHYLPREDNISOLONE [Suspect]
     Active Substance: METHYLPREDNISOLONE
     Route: 042
  61. METHYLPREDNISOLONE [Suspect]
     Active Substance: METHYLPREDNISOLONE
  62. METHYLPREDNISOLONE [Suspect]
     Active Substance: METHYLPREDNISOLONE
  63. METHYLPREDNISOLONE [Suspect]
     Active Substance: METHYLPREDNISOLONE
     Route: 042
  64. METHYLPREDNISOLONE [Suspect]
     Active Substance: METHYLPREDNISOLONE
     Route: 042
  65. PROPOFOL [Concomitant]
     Active Substance: PROPOFOL
     Indication: Endotracheal intubation
  66. PROPOFOL [Concomitant]
     Active Substance: PROPOFOL
     Route: 065
  67. PROPOFOL [Concomitant]
     Active Substance: PROPOFOL
     Route: 065
  68. PROPOFOL [Concomitant]
     Active Substance: PROPOFOL
  69. ADUCANUMAB [Concomitant]
     Active Substance: ADUCANUMAB
     Indication: Dementia Alzheimer^s type
  70. ADUCANUMAB [Concomitant]
     Active Substance: ADUCANUMAB
  71. ADUCANUMAB [Concomitant]
     Active Substance: ADUCANUMAB
     Route: 065
  72. ADUCANUMAB [Concomitant]
     Active Substance: ADUCANUMAB
     Route: 065
  73. ADUCANUMAB [Concomitant]
     Active Substance: ADUCANUMAB
     Route: 065
  74. ADUCANUMAB [Concomitant]
     Active Substance: ADUCANUMAB
     Route: 065
  75. ADUCANUMAB [Concomitant]
     Active Substance: ADUCANUMAB
  76. ADUCANUMAB [Concomitant]
     Active Substance: ADUCANUMAB
  77. ADUCANUMAB [Concomitant]
     Active Substance: ADUCANUMAB
     Route: 065
  78. ADUCANUMAB [Concomitant]
     Active Substance: ADUCANUMAB
  79. ADUCANUMAB [Concomitant]
     Active Substance: ADUCANUMAB
  80. ADUCANUMAB [Concomitant]
     Active Substance: ADUCANUMAB
     Route: 065
  81. ADUCANUMAB [Concomitant]
     Active Substance: ADUCANUMAB
  82. ADUCANUMAB [Concomitant]
     Active Substance: ADUCANUMAB
  83. ADUCANUMAB [Concomitant]
     Active Substance: ADUCANUMAB
     Route: 065
  84. ADUCANUMAB [Concomitant]
     Active Substance: ADUCANUMAB
     Route: 065
  85. LEVETIRACETAM [Concomitant]
     Active Substance: LEVETIRACETAM
     Indication: Seizure
  86. LEVETIRACETAM [Concomitant]
     Active Substance: LEVETIRACETAM
     Route: 065
  87. LEVETIRACETAM [Concomitant]
     Active Substance: LEVETIRACETAM
     Route: 065
  88. LEVETIRACETAM [Concomitant]
     Active Substance: LEVETIRACETAM
  89. LORAZEPAM [Concomitant]
     Active Substance: LORAZEPAM
     Indication: Seizure
  90. LORAZEPAM [Concomitant]
     Active Substance: LORAZEPAM
     Route: 065
  91. LORAZEPAM [Concomitant]
     Active Substance: LORAZEPAM
     Route: 065
  92. LORAZEPAM [Concomitant]
     Active Substance: LORAZEPAM
  93. METHYLPREDNISOLONE [Concomitant]
     Active Substance: METHYLPREDNISOLONE
     Indication: Language disorder
  94. METHYLPREDNISOLONE [Concomitant]
     Active Substance: METHYLPREDNISOLONE
     Indication: Disturbance in attention
     Route: 065
  95. METHYLPREDNISOLONE [Concomitant]
     Active Substance: METHYLPREDNISOLONE
     Route: 065
  96. METHYLPREDNISOLONE [Concomitant]
     Active Substance: METHYLPREDNISOLONE
  97. RAMIPRIL [Concomitant]
     Active Substance: RAMIPRIL
     Indication: Hypertension
  98. RAMIPRIL [Concomitant]
     Active Substance: RAMIPRIL
     Route: 065
  99. RAMIPRIL [Concomitant]
     Active Substance: RAMIPRIL
     Route: 065
  100. RAMIPRIL [Concomitant]
     Active Substance: RAMIPRIL
  101. ROSUVASTATIN [Concomitant]
     Active Substance: ROSUVASTATIN
     Indication: Dyslipidaemia
  102. ROSUVASTATIN [Concomitant]
     Active Substance: ROSUVASTATIN
     Route: 065
  103. ROSUVASTATIN [Concomitant]
     Active Substance: ROSUVASTATIN
     Route: 065
  104. ROSUVASTATIN [Concomitant]
     Active Substance: ROSUVASTATIN
  105. TRAZODONE [Concomitant]
     Active Substance: TRAZODONE HYDROCHLORIDE
     Indication: Product used for unknown indication
  106. TRAZODONE [Concomitant]
     Active Substance: TRAZODONE HYDROCHLORIDE
     Route: 065
  107. TRAZODONE [Concomitant]
     Active Substance: TRAZODONE HYDROCHLORIDE
     Route: 065
  108. TRAZODONE [Concomitant]
     Active Substance: TRAZODONE HYDROCHLORIDE
  109. VITAMIN B12 [Concomitant]
     Active Substance: CYANOCOBALAMIN
     Indication: Product used for unknown indication
  110. VITAMIN B12 [Concomitant]
     Active Substance: CYANOCOBALAMIN
     Route: 065
  111. VITAMIN B12 [Concomitant]
     Active Substance: CYANOCOBALAMIN
     Route: 065
  112. VITAMIN B12 [Concomitant]
     Active Substance: CYANOCOBALAMIN
  113. CYANOCOBALAMIN [Concomitant]
     Active Substance: CYANOCOBALAMIN
  114. CYANOCOBALAMIN [Concomitant]
     Active Substance: CYANOCOBALAMIN
     Route: 065
  115. CYANOCOBALAMIN [Concomitant]
     Active Substance: CYANOCOBALAMIN
     Route: 065
  116. CYANOCOBALAMIN [Concomitant]
     Active Substance: CYANOCOBALAMIN

REACTIONS (1)
  - Drug ineffective [Fatal]
